FAERS Safety Report 4892022-1 (Version None)
Quarter: 2006Q1

REPORT INFORMATION
  Report Type: 
  Country: None (occurrence: None)
  Receive Date: 20060123
  Receipt Date: 20060112
  Transmission Date: 20060701
  Serious: Yes (Death, Hospitalization, Other)
  Sender: FDA-Public Use
  Company Number: 2006-01-0707

PATIENT
  Age: 66 Year
  Sex: Male

DRUGS (9)
  1. VIRAFERONPEG [Suspect]
     Indication: HEPATITIS C
     Dosage: 180 MCG QW SUBCUTANEOUS
     Route: 058
     Dates: start: 20050125, end: 20050218
  2. REBETOL [Suspect]
     Indication: HEPATITIS C
     Dosage: 600 MG BID ORAL
     Route: 048
     Dates: start: 20050125, end: 20050218
  3. OMEPRAZOLE [Concomitant]
  4. SPIRONOLACTONE [Concomitant]
  5. FRUSEMIDE [Concomitant]
  6. THIAMINE [Concomitant]
  7. PAROXETINE HCL [Concomitant]
  8. METHADONE [Concomitant]
  9. SALBUTAMOL SULPHATE [Concomitant]

REACTIONS (8)
  - GENERALISED OEDEMA [None]
  - HEPATIC CIRRHOSIS [None]
  - HEPATIC FAILURE [None]
  - HYPOTENSION [None]
  - HYPOTHERMIA [None]
  - PANCREATITIS CHRONIC [None]
  - SHOCK [None]
  - SPLEEN DISORDER [None]
